FAERS Safety Report 7141402-2 (Version None)
Quarter: 2010Q4

REPORT INFORMATION
  Report Type: 
  Country: None (occurrence: None)
  Receive Date: 20101207
  Receipt Date: 20101124
  Transmission Date: 20110411
  Serious: Yes (Hospitalization)
  Sender: FDA-Public Use
  Company Number: FR-JNJFOC-20101202059

PATIENT
  Sex: Female

DRUGS (3)
  1. IXPRIM [Suspect]
     Indication: PAIN
     Route: 048
  2. IMOVANE [Suspect]
     Indication: PRODUCT USED FOR UNKNOWN INDICATION
     Route: 048
  3. PARACETAMOL [Suspect]
     Indication: PRODUCT USED FOR UNKNOWN INDICATION

REACTIONS (6)
  - BLADDER DILATATION [None]
  - CONFUSIONAL STATE [None]
  - CONSTIPATION [None]
  - GAIT DISTURBANCE [None]
  - SOMNOLENCE [None]
  - URINARY RETENTION [None]
